FAERS Safety Report 17324223 (Version 1)
Quarter: 2020Q1

REPORT INFORMATION
  Report Type: Spontaneous
  Country: US (occurrence: US)
  Receive Date: 20200124
  Receipt Date: 20200124
  Transmission Date: 20200409
  Serious: Yes (Disabling)
  Sender: FDA-Public Use
  Company Number: None

PATIENT
  Age: 52 Year
  Sex: Female
  Weight: 54.9 kg

DRUGS (11)
  1. LEVOTHYROXINE 100 MCG [Concomitant]
     Active Substance: LEVOTHYROXINE
  2. PROBIOTICS [Concomitant]
     Active Substance: PROBIOTICS NOS
  3. OMNISCAN [Suspect]
     Active Substance: GADODIAMIDE
     Indication: X-RAY WITH CONTRAST
     Dosage: ?          QUANTITY:10 INJECTION(S);?
     Route: 030
  4. PROGESTERONE 100 MG [Concomitant]
     Active Substance: PROGESTERONE
  5. VITAMIN D 2000 [Concomitant]
     Active Substance: VITAMIN D NOS
  6. CLARITIN D 24 HR [Concomitant]
  7. OMEGA 3 [Concomitant]
     Active Substance: OMEGA-3 FATTY ACIDS
  8. MAGNESIUM [Concomitant]
     Active Substance: MAGNESIUM
  9. CALCIUM [Concomitant]
     Active Substance: CALCIUM
  10. DIGESTIVE ENZYMES [Concomitant]
     Active Substance: UNSPECIFIED INGREDIENT
  11. LIOTHYROINIE 0.5 MCG [Concomitant]

REACTIONS (1)
  - Gait inability [None]

NARRATIVE: CASE EVENT DATE: 20180908
